FAERS Safety Report 21189017 (Version 1)
Quarter: 2022Q3

REPORT INFORMATION
  Report Type: Spontaneous
  Country: GB (occurrence: GB)
  Receive Date: 20220809
  Receipt Date: 20220809
  Transmission Date: 20221027
  Serious: Yes (Hospitalization, Other)
  Sender: FDA-Public Use
  Company Number: GB-MLMSERVICE-20220721-3690422-1

PATIENT
  Age: 40 Year
  Sex: Female

DRUGS (1)
  1. BISOPROLOL [Suspect]
     Active Substance: BISOPROLOL
     Indication: Myocarditis
     Dosage: LOW DOSE
     Route: 065

REACTIONS (3)
  - Tachycardia [Unknown]
  - Sinus arrest [Unknown]
  - Haemodynamic instability [Unknown]
